FAERS Safety Report 8446498-3 (Version None)
Quarter: 2012Q2

REPORT INFORMATION
  Report Type: 
  Country: None (occurrence: None)
  Receive Date: 20120618
  Receipt Date: 20120424
  Transmission Date: 20120825
  Serious: No
  Sender: FDA-Public Use
  Company Number: US-TEVA-335162USA

PATIENT
  Sex: Female

DRUGS (2)
  1. ACTIQ [Suspect]
     Indication: BREAKTHROUGH PAIN
     Dosage: UP TO FIVE PER DAY
     Dates: start: 20020101
  2. FENTANYL-100 [Concomitant]
     Indication: PAIN
     Route: 062

REACTIONS (3)
  - PHARYNGITIS STREPTOCOCCAL [None]
  - DYSPHAGIA [None]
  - PYREXIA [None]
